FAERS Safety Report 9972336 (Version 7)
Quarter: 2014Q2

REPORT INFORMATION
  Report Type: Report from Study
  Country: DE (occurrence: DE)
  Receive Date: 20140306
  Receipt Date: 20140429
  Transmission Date: 20141212
  Serious: Yes (Death, Hospitalization)
  Sender: FDA-Public Use
  Company Number: DE-PFIZER INC-2014031800

PATIENT
  Age: 79 Year
  Sex: Female
  Weight: 58 kg

DRUGS (9)
  1. INLYTA [Suspect]
     Indication: METASTATIC RENAL CELL CARCINOMA
     Dosage: 5 MG, 2X/DAY
     Dates: start: 20140127, end: 20140131
  2. OMEPRAZOL [Concomitant]
     Indication: PROPHYLAXIS
     Dosage: 1-0-0, 1X/DAY
     Route: 048
  3. TORASEMIDE [Concomitant]
     Indication: HYPERTENSION
     Dosage: 1-0-0, 1X/DAY
     Route: 048
  4. RAMIPRIL [Concomitant]
     Indication: HYPERTENSION
     Dosage: 5 MG, 1X/DAY, 1-0-0
     Route: 048
  5. THYRONAJOD [Concomitant]
     Indication: HYPOTHYROIDISM
     Dosage: 125 MG, 1X/DAY, 1-0-0
     Route: 048
  6. BISOPROLOL [Concomitant]
     Indication: HYPERTENSION
     Dosage: 1.25 MG, 1X/DAY, 2.5 MG 0-1/2-0
     Route: 048
  7. MAGNESIUM [Concomitant]
     Indication: MUSCLE SPASMS
     Dosage: UNK
     Route: 048
  8. DEXAMETHASONE [Concomitant]
     Indication: RADIOTHERAPY TO BRAIN
     Dosage: 2 MG, 2X/DAY, 4 MG 1/2-1/2-0
     Route: 048
     Dates: start: 20140121
  9. AMPHO-MORONAL [Concomitant]
     Indication: ORAL CANDIDIASIS
     Dosage: UNK
     Dates: start: 20140121

REACTIONS (2)
  - Asthenia [Fatal]
  - Diarrhoea [Recovered/Resolved]
